FAERS Safety Report 4289721-1 (Version None)
Quarter: 2004Q1

REPORT INFORMATION
  Report Type: 
  Country: None (occurrence: None)
  Receive Date: 20040122
  Receipt Date: 20031017
  Transmission Date: 20041129
  Serious: Yes (Hospitalization, Other)
  Sender: FDA-Public Use
  Company Number: 2003111325

PATIENT
  Age: 36 Year
  Sex: Female

DRUGS (6)
  1. RELPAX [Suspect]
     Indication: MIGRAINE
     Dosage: 40 MILLIGRAM (PRN)
     Dates: end: 20030101
  2. SUMATRIPTAN SUCCINATE [Concomitant]
  3. METOPROLOL [Concomitant]
  4. GABAPENTIN [Concomitant]
  5. VENLAFAXINE HYDROCHLORIDE [Concomitant]
  6. FENTANYL CITRATE [Concomitant]

REACTIONS (3)
  - ARRHYTHMIA [None]
  - CHEST PAIN [None]
  - MIGRAINE [None]
